FAERS Safety Report 4514903-0 (Version None)
Quarter: 2004Q4

REPORT INFORMATION
  Report Type: 
  Country: None (occurrence: None)
  Receive Date: 20041129
  Receipt Date: 20041129
  Transmission Date: 20050328
  Serious: No
  Sender: FDA-Public Use
  Company Number: None

PATIENT
  Age: 56 Year
  Sex: Female
  Weight: 65 kg

DRUGS (4)
  1. LEVOFLOXACIN [Suspect]
     Indication: ENDOSCOPIC RETROGRADE CHOLANGIOPANCREATOGRAPHY
     Dosage: 500MG   TIMES ONE INTRAVENOUS
     Route: 042
     Dates: start: 20041116, end: 20041116
  2. AMITRIPTYLINE HCL [Concomitant]
  3. CETIRIZINE HCL [Concomitant]
  4. PREMARIN [Concomitant]

REACTIONS (4)
  - ERYTHEMA [None]
  - INFUSION RELATED REACTION [None]
  - SKIN DISORDER [None]
  - VEIN DISORDER [None]
